FAERS Safety Report 6155000-0 (Version None)
Quarter: 2009Q2

REPORT INFORMATION
  Report Type: 
  Country: None (occurrence: None)
  Receive Date: 20090414
  Receipt Date: 20090408
  Transmission Date: 20091009
  Serious: Yes (Life-Threatening, Hospitalization, Disabling, Other)
  Sender: FDA-Public Use
  Company Number: GB-ABBOTT-09P-167-0567319-00

PATIENT
  Age: 58 Year
  Sex: Male

DRUGS (9)
  1. KLARICID [Suspect]
     Indication: RESPIRATORY TRACT INFECTION
     Dates: start: 20081201, end: 20081201
  2. SIMVASTATIN [Suspect]
     Indication: BLOOD CHOLESTEROL INCREASED
     Dates: end: 20090101
  3. CYCLOSPORINE [Concomitant]
     Indication: RENAL TRANSPLANT
  4. INSULIN [Concomitant]
     Indication: TYPE 1 DIABETES MELLITUS
  5. ASPIRIN [Concomitant]
     Indication: PROPHYLAXIS
  6. ALLOPURINOL [Concomitant]
     Indication: GOUT
  7. SILDENAFIL CITRATE [Concomitant]
     Indication: DRUG USE FOR UNKNOWN INDICATION
  8. IRBESARTAN [Concomitant]
     Indication: BLOOD PRESSURE
  9. ALFACALCIDOL [Concomitant]
     Indication: BLOOD CALCIUM DECREASED

REACTIONS (5)
  - BLOOD CREATINE PHOSPHOKINASE INCREASED [None]
  - BLOOD POTASSIUM INCREASED [None]
  - METABOLIC ACIDOSIS [None]
  - MYOPATHY [None]
  - PARALYSIS [None]
